FAERS Safety Report 20019606 (Version 4)
Quarter: 2021Q4

REPORT INFORMATION
  Report Type: Report from Study
  Country: US (occurrence: US)
  Receive Date: 20211101
  Receipt Date: 20211216
  Transmission Date: 20220303
  Serious: Yes (Other)
  Sender: FDA-Public Use
  Company Number: US-GLAXOSMITHKLINE-US2021AMR030118

PATIENT
  Age: 77 Year
  Sex: Male

DRUGS (2)
  1. BELANTAMAB MAFODOTIN [Suspect]
     Active Substance: BELANTAMAB MAFODOTIN
     Indication: Plasma cell myeloma
     Dosage: UNK
     Dates: start: 202006
  2. BELANTAMAB MAFODOTIN [Suspect]
     Active Substance: BELANTAMAB MAFODOTIN
     Dosage: UNK
     Dates: start: 20210209

REACTIONS (7)
  - Plasma cell myeloma [Unknown]
  - Ocular toxicity [Recovered/Resolved]
  - Keratopathy [Unknown]
  - Visual acuity reduced [Recovered/Resolved]
  - Corneal disorder [Not Recovered/Not Resolved]
  - Dry eye [Recovered/Resolved]
  - Glare [Recovered/Resolved]

NARRATIVE: CASE EVENT DATE: 20200901
